FAERS Safety Report 7362060-8 (Version None)
Quarter: 2011Q1

REPORT INFORMATION
  Report Type: 
  Country: None (occurrence: None)
  Receive Date: 20110318
  Receipt Date: 20110311
  Transmission Date: 20110831
  Serious: Yes (Hospitalization, Other)
  Sender: FDA-Public Use
  Company Number: US-PFIZER INC-2006031726

PATIENT
  Sex: Male

DRUGS (10)
  1. WELLBUTRIN [Concomitant]
     Dosage: UNK
  2. VALIUM [Concomitant]
     Dosage: UNK
  3. ACETAMINOPHEN [Suspect]
     Indication: ILL-DEFINED DISORDER
     Dosage: UNK
  4. PAXIL [Concomitant]
     Dosage: UNK
     Dates: start: 19990121
  5. NEURONTIN [Suspect]
     Indication: BIPOLAR DISORDER
     Dosage: 400 MG, 3X/DAY
     Dates: start: 19990121
  6. RISPERDAL [Concomitant]
     Dosage: UNK
  7. DEPAKOTE [Concomitant]
     Dosage: UNK
  8. DRIXORAL [Suspect]
     Indication: ILL-DEFINED DISORDER
     Dosage: UNK
  9. COGENTIN [Concomitant]
     Dosage: UNK
  10. HALDOL [Concomitant]
     Dosage: UNK

REACTIONS (7)
  - OVERDOSE [None]
  - SUICIDAL IDEATION [None]
  - SCHIZOPHRENIFORM DISORDER [None]
  - MULTIPLE DRUG OVERDOSE INTENTIONAL [None]
  - HALLUCINATION, AUDITORY [None]
  - SUICIDE ATTEMPT [None]
  - BIPOLAR DISORDER [None]
